FAERS Safety Report 7599102-0 (Version None)
Quarter: 2011Q3

REPORT INFORMATION
  Report Type: 
  Country: None (occurrence: None)
  Receive Date: 20110711
  Receipt Date: 20110623
  Transmission Date: 20111222
  Serious: Yes (Hospitalization)
  Sender: FDA-Public Use
  Company Number: US-BAYER-2011-044479

PATIENT
  Age: 56 Year
  Sex: Male

DRUGS (3)
  1. NEXAVAR [Suspect]
     Dosage: 400 MG, BID
     Route: 048
     Dates: start: 20110601, end: 20110620
  2. TRAMADOL HCL [Concomitant]
     Indication: PAIN
     Dosage: UNK
  3. NEXAVAR [Suspect]
     Indication: HEPATIC NEOPLASM MALIGNANT
     Dosage: 200 MG, BID
     Route: 048
     Dates: start: 20110521, end: 20110601

REACTIONS (6)
  - HAEMORRHAGE [None]
  - VOMITING [None]
  - AMMONIA INCREASED [None]
  - DIARRHOEA [None]
  - NERVOUS SYSTEM DISORDER [None]
  - ABDOMINAL PAIN UPPER [None]
